FAERS Safety Report 4627324-7 (Version None)
Quarter: 2005Q1

REPORT INFORMATION
  Report Type: 
  Country: None (occurrence: None)
  Receive Date: 20050331
  Receipt Date: 20050321
  Transmission Date: 20050727
  Serious: Yes (Other)
  Sender: FDA-Public Use
  Company Number: HQWYE195816JUL04

PATIENT
  Age: 57 Year
  Sex: Female
  Weight: 90.8 kg

DRUGS (5)
  1. PREMPRO [Suspect]
     Indication: HORMONE REPLACEMENT THERAPY
  2. PREMARIN [Suspect]
     Dosage: 0.625 MG DAILY, ORAL
     Route: 048
     Dates: start: 19890101, end: 20010101
  3. FOSINOPRIL SODIUM [Concomitant]
  4. PRINIVIL [Concomitant]
  5. DITROPAN [Concomitant]

REACTIONS (6)
  - BREAST CANCER METASTATIC [None]
  - CYST RUPTURE [None]
  - DEPRESSION [None]
  - INFECTED SEBACEOUS CYST [None]
  - OESTROGEN RECEPTOR ASSAY POSITIVE [None]
  - PROGESTERONE RECEPTOR ASSAY POSITIVE [None]
